FAERS Safety Report 24405449 (Version 1)
Quarter: 2024Q4

REPORT INFORMATION
  Report Type: Spontaneous
  Country: CN (occurrence: CN)
  Receive Date: 20241007
  Receipt Date: 20241007
  Transmission Date: 20250115
  Serious: Yes (Hospitalization, Other)
  Sender: BAXTER
  Company Number: None

PATIENT
  Age: 41 Year
  Sex: Male
  Weight: 62 kg

DRUGS (10)
  1. CYCLOPHOSPHAMIDE [Suspect]
     Active Substance: CYCLOPHOSPHAMIDE
     Indication: Burkitt^s lymphoma
     Dosage: 0.5 G, ONE TIME IN ONE DAY,DILUTED WITH 0.9% SODIUM CHLORIDE INJECTION 100ML, AS PART OF R-HYPER-CVA
     Route: 041
     Dates: start: 20240804, end: 20240806
  2. SODIUM CHLORIDE [Suspect]
     Active Substance: SODIUM CHLORIDE
     Indication: Medication dilution
     Dosage: 600ML ONE TIME IN ONE DAY USED TO DILUTE RITUXIMAB 600MG
     Route: 041
     Dates: start: 20240803, end: 20240803
  3. SODIUM CHLORIDE [Suspect]
     Active Substance: SODIUM CHLORIDE
     Dosage: 100ML ONE TIME IN ONE DAY USED TO DILUTE DOXORUBICIN HYDROCHLORIDE FOR INJECTION 80MG
     Route: 041
     Dates: start: 20240807, end: 20240807
  4. SODIUM CHLORIDE [Suspect]
     Active Substance: SODIUM CHLORIDE
     Dosage: 100ML ONE TIME IN ONE DAY USED TO DILUTE VINCRISTINE SULFATE INJECTION 2MG
     Route: 041
     Dates: start: 20240807, end: 20240807
  5. SODIUM CHLORIDE [Suspect]
     Active Substance: SODIUM CHLORIDE
     Dosage: 100ML ONE TIME IN ONE DAY USED TO DILUTE CYCLOPHOSPHAMIDE FOR INJECTION 0.5G
     Route: 041
     Dates: start: 20240804, end: 20240806
  6. DOXORUBICIN HYDROCHLORIDE [Suspect]
     Active Substance: DOXORUBICIN HYDROCHLORIDE
     Indication: Burkitt^s lymphoma
     Dosage: 80 MG ONE TIME IN ONE DAY,DILUTED WITH 0.9% SODIUM CHLORIDE INJECTION 100ML, AS PART OF R-HYPER-CVAD
     Route: 041
     Dates: start: 20240807, end: 20240807
  7. VINCRISTINE SULFATE [Suspect]
     Active Substance: VINCRISTINE SULFATE
     Indication: Burkitt^s lymphoma
     Dosage: 2 MG ONE TIME IN ONE DAY, DILUTED WITH 0.9% SODIUM CHLORIDE INJECTION 100ML, AS PART OF R-HYPER-CVAD
     Route: 041
     Dates: start: 20240807, end: 20240807
  8. VINCRISTINE SULFATE [Suspect]
     Active Substance: VINCRISTINE SULFATE
     Indication: Lymphoma
  9. RITUXIMAB [Suspect]
     Active Substance: RITUXIMAB
     Indication: Burkitt^s lymphoma
     Dosage: 600MG, ONE TIME IN ONE DAY,DILUTED WITH 0.9% SODIUM CHLORIDE INJECTION 600ML, AS PART OF R-HYPER-CVA
     Route: 041
     Dates: start: 20240803, end: 20240803
  10. RITUXIMAB [Suspect]
     Active Substance: RITUXIMAB
     Indication: Neoplasm malignant

REACTIONS (1)
  - Myelosuppression [Recovering/Resolving]

NARRATIVE: CASE EVENT DATE: 20240813
